FAERS Safety Report 14746993 (Version 3)
Quarter: 2018Q2

REPORT INFORMATION
  Report Type: Report from Study
  Country: US (occurrence: US)
  Receive Date: 20180411
  Receipt Date: 20180423
  Transmission Date: 20180711
  Serious: No
  Sender: FDA-Public Use
  Company Number: PHEH2018US013948

PATIENT
  Age: 30 Year
  Sex: Male

DRUGS (1)
  1. GILENYA [Suspect]
     Active Substance: FINGOLIMOD HYDROCHLORIDE
     Indication: MULTIPLE SCLEROSIS
     Dosage: 0.5 MG, QD
     Route: 048
     Dates: start: 20180329

REACTIONS (5)
  - Dizziness [Recovered/Resolved]
  - Hot flush [Unknown]
  - Muscular weakness [Unknown]
  - Fatigue [Recovered/Resolved]
  - Disorientation [Unknown]

NARRATIVE: CASE EVENT DATE: 20180329
